FAERS Safety Report 26006147 (Version 1)
Quarter: 2025Q4

REPORT INFORMATION
  Report Type: Spontaneous
  Country: US (occurrence: None)
  Receive Date: 20251105
  Receipt Date: 20251105
  Transmission Date: 20260117
  Serious: Yes (Hospitalization)
  Sender: FDA-CTU
  Company Number: None

PATIENT
  Age: 23 Year
  Sex: Male

DRUGS (7)
  1. ADAKVEO [Suspect]
     Active Substance: CRIZANLIZUMAB-TMCA
     Indication: Sickle cell disease
     Dosage: 615 MG EVERY 4 WEEKS  INTRAVENOUS ?
     Route: 042
     Dates: start: 20220412
  2. ADAKVEO [Suspect]
     Active Substance: CRIZANLIZUMAB-TMCA
     Indication: Thalassaemia beta
  3. NORMAL SALINE FLUSH (10ML) [Concomitant]
  4. EPINEPHRINE AUTO-INJ [Concomitant]
  5. DIPHENHYDRAMINE [Concomitant]
     Active Substance: DIPHENHYDRAMINE
  6. SODIUM CHLOR (100ML/BAG) [Concomitant]
  7. SODIUM CHLOR (50ML/BAG) [Concomitant]

REACTIONS (3)
  - Pain [None]
  - Sickle cell disease [None]
  - Blood pressure increased [None]

NARRATIVE: CASE EVENT DATE: 20251009
